FAERS Safety Report 9807757 (Version 1)
Quarter: 2014Q1

REPORT INFORMATION
  Report Type: Spontaneous
  Country: FR (occurrence: FR)
  Receive Date: 20140110
  Receipt Date: 20140110
  Transmission Date: 20141002
  Serious: Yes (Other)
  Sender: FDA-Public Use
  Company Number: FR-ASTRAZENECA-2014SE00528

PATIENT
  Age: 25051 Day
  Sex: Female

DRUGS (6)
  1. XEROQUEL [Suspect]
     Indication: DEPRESSION
     Route: 048
     Dates: start: 20131117, end: 20131120
  2. COAPROVEL [Concomitant]
  3. VASTEN [Concomitant]
  4. INEXIUM [Concomitant]
  5. PIASCLEDINE [Concomitant]
  6. SEROPLEX [Concomitant]

REACTIONS (1)
  - Phlebitis [Recovered/Resolved]
